FAERS Safety Report 9467108 (Version 1)
Quarter: 2013Q3

REPORT INFORMATION
  Report Type: Spontaneous
  Country: US (occurrence: US)
  Receive Date: 20130820
  Receipt Date: 20130820
  Transmission Date: 20140515
  Serious: Yes (Hospitalization)
  Sender: FDA-Public Use
  Company Number: US-B.I. PHARMACEUTICALS,INC./RIDGEFIELD-2013-BI-25275GD

PATIENT
  Age: 2 Year
  Sex: Female
  Weight: 13.15 kg

DRUGS (1)
  1. PRADAXA [Suspect]
     Dosage: MOST OF A CHEWED 150-MG CAPSULE WAS RETRIEVED BUT SOME WAS EATEN
     Route: 048

REACTIONS (1)
  - Toxicity to various agents [Recovered/Resolved]
